FAERS Safety Report 20095929 (Version 1)
Quarter: 2021Q4

REPORT INFORMATION
  Report Type: Spontaneous
  Country: ES (occurrence: ES)
  Receive Date: 20211122
  Receipt Date: 20211122
  Transmission Date: 20220303
  Serious: Yes (Death)
  Sender: FDA-Public Use
  Company Number: ES-NOVARTISPH-NVSC2021ES265737

PATIENT
  Sex: Female

DRUGS (1)
  1. KISQALI [Suspect]
     Active Substance: RIBOCICLIB
     Indication: Breast cancer
     Route: 065

REACTIONS (7)
  - Pneumonitis [Fatal]
  - SARS-CoV-2 test positive [Fatal]
  - Cough [Fatal]
  - Viral infection [Fatal]
  - Coagulopathy [Fatal]
  - Cerebral haemorrhage [Fatal]
  - Blood immunoglobulin G increased [Fatal]
